FAERS Safety Report 10380228 (Version 1)
Quarter: 2014Q3

REPORT INFORMATION
  Report Type: Spontaneous
  Country: BR (occurrence: BR)
  Receive Date: 20140813
  Receipt Date: 20140813
  Transmission Date: 20150326
  Serious: Yes (Hospitalization, Other)
  Sender: FDA-Public Use
  Company Number: BR-BRISTOL-MYERS SQUIBB COMPANY-21297171

PATIENT
  Age: 80 Year
  Sex: Male
  Weight: 71 kg

DRUGS (9)
  1. CLOPIDOGREL BISULFATE. [Suspect]
     Active Substance: CLOPIDOGREL BISULFATE
     Indication: PROTHROMBIN LEVEL DECREASED
  2. METFORMIN HCL [Suspect]
     Active Substance: METFORMIN HYDROCHLORIDE
     Indication: GLUCOSE TOLERANCE IMPAIRED
     Route: 048
  3. METFORMIN HCL [Suspect]
     Active Substance: METFORMIN HYDROCHLORIDE
     Indication: GLUCOSE TOLERANCE IMPAIRED
     Route: 048
  4. ATENOLOL. [Suspect]
     Active Substance: ATENOLOL
     Indication: HYPERTENSION
     Route: 048
  5. AMLODIPINE BESYLATE. [Concomitant]
     Active Substance: AMLODIPINE BESYLATE
     Indication: HYPERTENSION
  6. SEROQUEL [Suspect]
     Active Substance: QUETIAPINE FUMARATE
     Indication: HALLUCINATION
     Route: 048
     Dates: start: 2013
  7. ENALAPRIL MALEATE. [Concomitant]
     Active Substance: ENALAPRIL MALEATE
     Indication: HYPERTENSION
  8. SEROQUEL [Suspect]
     Active Substance: QUETIAPINE FUMARATE
     Indication: ISCHAEMIC STROKE
     Route: 048
     Dates: start: 2013
  9. ATENSINA [Concomitant]
     Active Substance: CLONIDINE
     Indication: HYPERTENSION

REACTIONS (8)
  - Speech disorder [Recovering/Resolving]
  - Small intestinal haemorrhage [Recovered/Resolved]
  - Weight decreased [Not Recovered/Not Resolved]
  - Ischaemic stroke [Recovered/Resolved with Sequelae]
  - Balance disorder [Recovering/Resolving]
  - Hallucination [Not Recovered/Not Resolved]
  - Dysphagia [Recovering/Resolving]
  - Heart rate abnormal [Unknown]

NARRATIVE: CASE EVENT DATE: 2007
